FAERS Safety Report 20548996 (Version 1)
Quarter: 2022Q1

REPORT INFORMATION
  Report Type: Spontaneous
  Country: US (occurrence: US)
  Receive Date: 20220303
  Receipt Date: 20220303
  Transmission Date: 20220423
  Serious: No
  Sender: FDA-Public Use
  Company Number: US-BRAINTREE LABORATORIES, INC.-2021BTE01008

PATIENT
  Age: 78 Year
  Sex: Male
  Weight: 96.145 kg

DRUGS (3)
  1. SUTAB [Suspect]
     Active Substance: MAGNESIUM SULFATE\POTASSIUM CHLORIDE\SODIUM SULFATE
     Indication: Colonoscopy
     Dosage: 2 X 12 TABLETS, 1X
     Dates: start: 20211205, end: 20211206
  2. VALIUM [Concomitant]
     Active Substance: DIAZEPAM
  3. UNSPECIFIED ANTI DIARRHEA MEDICATION [Concomitant]

REACTIONS (6)
  - Blood pressure increased [Recovered/Resolved]
  - Haemorrhoidal haemorrhage [Recovered/Resolved]
  - Anal incontinence [Recovered/Resolved]
  - Diarrhoea [Recovered/Resolved]
  - Dizziness [Recovered/Resolved]
  - Nausea [Recovered/Resolved]

NARRATIVE: CASE EVENT DATE: 20211201
